FAERS Safety Report 5879990-6 (Version None)
Quarter: 2008Q3

REPORT INFORMATION
  Report Type: 
  Country: None (occurrence: None)
  Receive Date: 20080912
  Receipt Date: 20080901
  Transmission Date: 20090109
  Serious: Yes (Hospitalization)
  Sender: FDA-Public Use
  Company Number: GB-PFIZER INC-2008047115

PATIENT
  Sex: Female

DRUGS (5)
  1. AROMASIN [Suspect]
     Indication: BREAST CANCER
     Dates: start: 20080128, end: 20080327
  2. LANSOPRAZOLE [Concomitant]
     Indication: REFLUX GASTRITIS
     Dosage: DAILY DOSE:30MG-FREQ:DAILY
     Route: 048
  3. AMLODIPINE [Concomitant]
     Indication: HYPERTENSION
     Dosage: DAILY DOSE:5MG-FREQ:DAILY
     Route: 048
  4. DOMPERIDONE [Concomitant]
     Indication: NAUSEA
     Dosage: DAILY DOSE:10MG-FREQ:DAILY
     Route: 048
  5. PERINDOPRIL ERBUMINE [Concomitant]
     Indication: HYPERTENSION
     Dosage: DAILY DOSE:2MG-FREQ:DAILY
     Route: 048

REACTIONS (3)
  - ABDOMINAL PAIN [None]
  - ADRENAL ADENOMA [None]
  - NAUSEA [None]
